FAERS Safety Report 4400078-5 (Version None)
Quarter: 2004Q3

REPORT INFORMATION
  Report Type: 
  Country: None (occurrence: None)
  Receive Date: 20040716
  Receipt Date: 20040611
  Transmission Date: 20050211
  Serious: Yes (Life-Threatening, Hospitalization, Disabling)
  Sender: FDA-Public Use
  Company Number: US-MERCK-0406USA01375

PATIENT
  Age: 54 Year
  Sex: Male

DRUGS (2)
  1. VIOXX [Suspect]
     Indication: POST PROCEDURAL PAIN
     Route: 048
     Dates: start: 20040604, end: 20040604
  2. VIOXX [Suspect]
     Route: 048
     Dates: start: 20040605, end: 20040609

REACTIONS (3)
  - MENTAL DISORDER [None]
  - MIGRAINE [None]
  - VISUAL DISTURBANCE [None]
